FAERS Safety Report 4900836-4 (Version None)
Quarter: 2006Q1

REPORT INFORMATION
  Report Type: 
  Country: None (occurrence: None)
  Receive Date: 20060113
  Receipt Date: 20051006
  Transmission Date: 20060701
  Serious: No
  Sender: FDA-Public Use
  Company Number: 2005SP002665

PATIENT
  Age: 64 Year
  Sex: Female
  Weight: 95.2554 kg

DRUGS (9)
  1. LUNESTA [Suspect]
     Indication: INSOMNIA
     Dosage: 3 MG; HS; ORAL
     Route: 048
     Dates: start: 20050701, end: 20050801
  2. VALSARTAN [Concomitant]
  3. LEVOXYL [Concomitant]
  4. FOSAMAX [Concomitant]
  5. PAXIL [Concomitant]
  6. ZETIA [Concomitant]
  7. SALICYLATES [Concomitant]
  8. OTC PREPARATION FOR JOINT HEALTH [Concomitant]
  9. IBUPROFEN [Concomitant]

REACTIONS (3)
  - AGITATION [None]
  - PARADOXICAL DRUG REACTION [None]
  - RESTLESS LEGS SYNDROME [None]
